FAERS Safety Report 6595129-6 (Version None)
Quarter: 2010Q1

REPORT INFORMATION
  Report Type: 
  Country: None (occurrence: None)
  Receive Date: 20100212
  Receipt Date: 20100201
  Transmission Date: 20100710
  Serious: Yes (Other)
  Sender: FDA-Public Use
  Company Number: 2010AP000049

PATIENT
  Age: 67 Year
  Sex: Male

DRUGS (14)
  1. APO-FENO-SUPER [Suspect]
     Indication: HYPERLIPIDAEMIA
     Dosage: 160 MG;PO QD
     Route: 048
     Dates: end: 20091225
  2. TERAZOSIN HCL [Suspect]
     Indication: PROSTATOMEGALY
     Dosage: 4 TAB; QD PO, 4 TAB; TAB; PO; QD
     Route: 048
  3. RANITIDINE [Suspect]
     Indication: GASTROOESOPHAGEAL REFLUX DISEASE
     Dosage: 150 MG; BID PO
     Route: 048
  4. SILDENAFIL CITRATE [Concomitant]
  5. EZETIMIBE [Concomitant]
  6. TERAZOSIN HYDROCHLORIDE [Concomitant]
  7. CLOPIDOGREL BISULFATE [Concomitant]
  8. ATENOLOL [Concomitant]
  9. RANITIDINE [Concomitant]
  10. DILTIAZEM HCL [Concomitant]
  11. RAMIPRIL [Concomitant]
  12. TESTOSTERONE ENANTHATE [Concomitant]
  13. ASPIRIN [Concomitant]
  14. ALPRAZOLAM [Concomitant]

REACTIONS (2)
  - MUSCLE SPASMS [None]
  - RHABDOMYOLYSIS [None]
